FAERS Safety Report 7427929-4 (Version None)
Quarter: 2011Q2

REPORT INFORMATION
  Report Type: 
  Country: None (occurrence: None)
  Receive Date: 20110421
  Receipt Date: 20110214
  Transmission Date: 20111010
  Serious: Yes (Hospitalization, Other)
  Sender: FDA-Public Use
  Company Number: US-BAYER-201037536NA

PATIENT
  Age: 26 Year
  Sex: Female
  Weight: 63.5 kg

DRUGS (2)
  1. YASMIN [Suspect]
     Indication: PRODUCT USED FOR UNKNOWN INDICATION
     Route: 048
     Dates: start: 20080601, end: 20081012
  2. YAZ [Suspect]
     Indication: DYSMENORRHOEA
     Route: 048
     Dates: start: 20080601, end: 20081012

REACTIONS (2)
  - NON-CARDIAC CHEST PAIN [None]
  - PULMONARY EMBOLISM [None]
